FAERS Safety Report 7830170-4 (Version None)
Quarter: 2011Q4

REPORT INFORMATION
  Report Type: 
  Country: None (occurrence: None)
  Receive Date: 20111021
  Receipt Date: 20111019
  Transmission Date: 20120403
  Serious: No
  Sender: FDA-Public Use
  Company Number: US-TEVA-305759USA

PATIENT
  Sex: Male

DRUGS (3)
  1. PROAIR HFA [Suspect]
     Indication: ASTHMA EXERCISE INDUCED
     Route: 055
  2. OLOPATADINE HYDROCHLORIDE [Concomitant]
     Indication: HYPERSENSITIVITY
  3. FLUTICASONE PROPIONATE [Concomitant]
     Indication: HYPERSENSITIVITY

REACTIONS (2)
  - DYSPNOEA [None]
  - BURNING SENSATION [None]
